FAERS Safety Report 11644407 (Version 1)
Quarter: 2015Q4

REPORT INFORMATION
  Report Type: Spontaneous
  Country: US (occurrence: US)
  Receive Date: 20151020
  Receipt Date: 20151020
  Transmission Date: 20160304
  Serious: No
  Sender: FDA-Public Use
  Company Number: US-ASTRAZENECA-2015SE98055

PATIENT
  Sex: Female

DRUGS (1)
  1. NEXIUM [Suspect]
     Active Substance: ESOMEPRAZOLE MAGNESIUM
     Indication: BURN OESOPHAGEAL
     Route: 048

REACTIONS (5)
  - Gastrooesophageal reflux disease [Unknown]
  - Off label use [Unknown]
  - Discomfort [Unknown]
  - Ulcer [Unknown]
  - Product use issue [Unknown]
